FAERS Safety Report 5791425-0 (Version None)
Quarter: 2008Q2

REPORT INFORMATION
  Report Type: 
  Country: None (occurrence: None)
  Receive Date: 20080626
  Receipt Date: 20080304
  Transmission Date: 20081010
  Serious: No
  Sender: FDA-Public Use
  Company Number: A0713201A

PATIENT
  Age: 60 Year
  Sex: Female

DRUGS (3)
  1. ALLI [Suspect]
     Route: 048
  2. EFFEXOR [Concomitant]
  3. WELLBUTRIN [Concomitant]

REACTIONS (5)
  - ABDOMINAL PAIN [None]
  - ABDOMINAL RIGIDITY [None]
  - CONSTIPATION [None]
  - DEFAECATION URGENCY [None]
  - RECTAL DISCHARGE [None]
